FAERS Safety Report 10897543 (Version 1)
Quarter: 2015Q1

REPORT INFORMATION
  Report Type: Spontaneous
  Country: BR (occurrence: BR)
  Receive Date: 20150309
  Receipt Date: 20150309
  Transmission Date: 20150721
  Serious: Yes (Other)
  Sender: FDA-Public Use
  Company Number: BR-ABBVIE-15P-020-1357410-00

PATIENT
  Age: 50 Year
  Sex: Female
  Weight: 64 kg

DRUGS (3)
  1. DEPAKENE [Suspect]
     Active Substance: VALPROIC ACID
     Indication: EPILEPSY
     Dosage: DAILY DOSE: 500 MG; UNIT DOSE ADMINISTERED EVERY 12 HOURS
     Route: 048
     Dates: start: 201302
  2. DEPAKENE [Interacting]
     Active Substance: VALPROIC ACID
     Route: 048
     Dates: start: 20150227
  3. DIAZEPAM. [Interacting]
     Active Substance: DIAZEPAM
     Indication: SEDATIVE THERAPY
     Dosage: DAILY DOSE: 10 MG; AT 09:00AM, ONCE IN A WHILE
     Route: 048
     Dates: start: 2014

REACTIONS (12)
  - Hypophagia [Recovered/Resolved]
  - Seizure [Not Recovered/Not Resolved]
  - Unevaluable event [Recovered/Resolved]
  - Medication error [Recovered/Resolved]
  - Fluid intake reduced [Recovered/Resolved]
  - Fluid intake reduced [Not Recovered/Not Resolved]
  - Hypophagia [Not Recovered/Not Resolved]
  - Seizure [Recovered/Resolved]
  - Aphasia [Recovered/Resolved]
  - Aphasia [Not Recovered/Not Resolved]
  - Unevaluable event [Not Recovered/Not Resolved]
  - Drug interaction [Not Recovered/Not Resolved]

NARRATIVE: CASE EVENT DATE: 201303
